FAERS Safety Report 12113209 (Version 1)
Quarter: 2016Q1

REPORT INFORMATION
  Report Type: Spontaneous
  Country: US (occurrence: US)
  Receive Date: 20160225
  Receipt Date: 20160225
  Transmission Date: 20160526
  Serious: No
  Sender: FDA-Public Use
  Company Number: US-GLENMARK PHARMACEUTICALS INC, USA.-2015GMK021727

PATIENT

DRUGS (1)
  1. OMEPRAZOLE. [Suspect]
     Active Substance: OMEPRAZOLE
     Indication: GASTROOESOPHAGEAL REFLUX DISEASE
     Dosage: 2 DF, QD (TWO CAPSULES ONCE DAILY)
     Route: 048
     Dates: start: 201512, end: 20151228

REACTIONS (6)
  - Headache [Recovering/Resolving]
  - Abdominal pain upper [Recovering/Resolving]
  - Abdominal discomfort [Recovering/Resolving]
  - Flatulence [Recovering/Resolving]
  - Nausea [Recovering/Resolving]
  - Vomiting [Recovering/Resolving]

NARRATIVE: CASE EVENT DATE: 201512
